FAERS Safety Report 9311272 (Version 7)
Quarter: 2015Q3

REPORT INFORMATION
  Report Type: Spontaneous
  Country: US (occurrence: US)
  Receive Date: 20130528
  Receipt Date: 20150915
  Transmission Date: 20151125
  Serious: Yes (Other)
  Sender: FDA-Public Use
  Company Number: US-PFIZER INC-2013159491

PATIENT
  Age: 55 Year
  Sex: Male

DRUGS (33)
  1. DILANTIN [Suspect]
     Active Substance: PHENYTOIN
     Dosage: 300 MG, 1X/DAY (IN THE EVENING)
     Route: 048
     Dates: start: 20080519
  2. DILANTIN [Suspect]
     Active Substance: PHENYTOIN
     Dosage: 300 MG, 1X/DAY (AT BED TIME)
     Route: 048
     Dates: start: 20090603
  3. DILANTIN [Suspect]
     Active Substance: PHENYTOIN
     Dosage: 60 MG, DAILY
     Route: 048
     Dates: start: 20140610, end: 20140611
  4. DILANTIN [Suspect]
     Active Substance: PHENYTOIN
     Indication: SEIZURE
     Dosage: 100 MG, 2X/DAY
     Route: 048
     Dates: start: 20060404
  5. DILANTIN [Suspect]
     Active Substance: PHENYTOIN
     Indication: SEIZURE
     Dosage: 300 MG, 2X/DAY
     Route: 048
     Dates: start: 19770323
  6. DILANTIN [Suspect]
     Active Substance: PHENYTOIN
     Dosage: 100 MG, 1X/DAY
     Route: 048
     Dates: start: 20120131
  7. DILANTIN [Suspect]
     Active Substance: PHENYTOIN
     Dosage: 4 DF, DAILY
     Route: 048
     Dates: start: 19791025
  8. DILANTIN [Suspect]
     Active Substance: PHENYTOIN
     Dosage: 100 MG, 2X/DAY
     Route: 048
     Dates: start: 20080317
  9. DILANTIN [Suspect]
     Active Substance: PHENYTOIN
     Dosage: 200 MG, 1X/DAY
     Route: 048
     Dates: start: 20130204
  10. DILANTIN [Suspect]
     Active Substance: PHENYTOIN
     Dosage: 400 MG (TWO DOSAGE FORMS IN THE MORNING AND TWO DOSAGE FORMS AT NIGHT), DAILY
     Route: 048
     Dates: start: 1996
  11. DILANTIN [Suspect]
     Active Substance: PHENYTOIN
     Dosage: UNK
     Route: 048
     Dates: start: 20130211
  12. DILANTIN [Suspect]
     Active Substance: PHENYTOIN
     Dosage: 200 MG, DAILY
     Route: 048
     Dates: start: 1985, end: 1996
  13. DILANTIN [Suspect]
     Active Substance: PHENYTOIN
     Dosage: 200 MG, 1X/DAY
     Route: 048
     Dates: start: 19811123
  14. DILANTIN [Suspect]
     Active Substance: PHENYTOIN
     Dosage: 400 MG, 1X/DAY (IN THE EVENING)
     Route: 048
     Dates: start: 20080328
  15. DILANTIN [Suspect]
     Active Substance: PHENYTOIN
     Indication: GENERALISED TONIC-CLONIC SEIZURE
     Dosage: (400-500) MG, DAILY
     Route: 048
     Dates: start: 1979, end: 1980
  16. DILANTIN [Suspect]
     Active Substance: PHENYTOIN
     Dosage: 200 MG, DAILY
     Route: 048
     Dates: start: 19990308
  17. DILANTIN [Suspect]
     Active Substance: PHENYTOIN
     Dosage: 100 MG, 3X/DAY
     Route: 048
     Dates: start: 20080512, end: 20090915
  18. DILANTIN [Suspect]
     Active Substance: PHENYTOIN
     Dosage: OVERALL DOSAGES RANGE 200-400 MG PER DAY, USUAL DOSE 200-300 MG DAILY
     Route: 048
     Dates: start: 197807
  19. DILANTIN [Suspect]
     Active Substance: PHENYTOIN
     Dosage: 100 MG, 3X/DAY
     Route: 048
     Dates: start: 19800312
  20. DILANTIN [Suspect]
     Active Substance: PHENYTOIN
     Dosage: 100 MG, 2X/DAY
     Route: 048
     Dates: start: 20080307
  21. DILANTIN [Suspect]
     Active Substance: PHENYTOIN
     Dosage: 500 MG (200 MG IN MORNING AND 300 MG IN EVENING), DAILY
     Route: 048
     Dates: start: 19790810
  22. DILANTIN [Suspect]
     Active Substance: PHENYTOIN
     Dosage: 100 MG, ALTERNATE DAY
     Route: 048
     Dates: start: 2013
  23. DILANTIN [Suspect]
     Active Substance: PHENYTOIN
     Indication: EPILEPSY
     Dosage: 100 MG (AT NIGHT), 1X/DAY
     Route: 048
     Dates: start: 20131018
  24. DILANTIN [Suspect]
     Active Substance: PHENYTOIN
     Indication: SEIZURE
     Dosage: 400 MG, DAILY (100 MG 4 DOSAGE FORMS PER DAY)
     Route: 048
     Dates: start: 19780907
  25. DILANTIN [Suspect]
     Active Substance: PHENYTOIN
     Dosage: 200 MG, 2X/DAY
     Route: 048
     Dates: start: 1980
  26. DILANTIN [Suspect]
     Active Substance: PHENYTOIN
     Dosage: 100 MG, 2X/DAY
     Route: 048
     Dates: start: 20020903
  27. DILANTIN [Suspect]
     Active Substance: PHENYTOIN
     Dosage: 200 MG, DAILY
     Route: 048
     Dates: start: 20130130
  28. DILANTIN [Suspect]
     Active Substance: PHENYTOIN
     Dosage: 200 MG, DAILY
     Route: 048
     Dates: start: 2000, end: 2004
  29. DILANTIN [Suspect]
     Active Substance: PHENYTOIN
     Dosage: 100 MG, 1X/DAY
     Route: 048
     Dates: start: 201302
  30. DILANTIN [Suspect]
     Active Substance: PHENYTOIN
     Indication: GENERALISED TONIC-CLONIC SEIZURE
     Dosage: 200 MG, 1X/DAY (100 MG TWO DOSAGE FORMS)
     Route: 048
     Dates: start: 20130213
  31. DILANTIN [Suspect]
     Active Substance: PHENYTOIN
     Indication: EPILEPSY
     Dosage: 200 MG, 2X/DAY
     Route: 048
     Dates: start: 19790508
  32. DILANTIN [Suspect]
     Active Substance: PHENYTOIN
     Dosage: 300 MG, 1X/DAY (EVERY NIGHT)
     Route: 048
     Dates: start: 20110419
  33. DILANTIN [Suspect]
     Active Substance: PHENYTOIN
     Dosage: 300 MG, DAILY
     Route: 048
     Dates: start: 200910, end: 201301

REACTIONS (5)
  - Stevens-Johnson syndrome [Unknown]
  - Neuropathy peripheral [Not Recovered/Not Resolved]
  - Cerebellar atrophy [Not Recovered/Not Resolved]
  - Cognitive disorder [Not Recovered/Not Resolved]
  - Cerebral atrophy [Unknown]
